FAERS Safety Report 8868444 (Version 1)
Quarter: 2012Q4

REPORT INFORMATION
  Report Type: 
  Country: US (occurrence: US)
  Receive Date: 20121026
  Receipt Date: 20121026
  Transmission Date: 20130627
  Serious: No
  Sender: FDA-Public Use
  Company Number: US-AMGEN-USASP2012041633

PATIENT
  Age: 30 Year
  Sex: Male
  Weight: 45.35 kg

DRUGS (11)
  1. ENBREL [Suspect]
     Indication: RHEUMATOID ARTHRITIS
     Dosage: 50 mg, qwk
     Route: 058
  2. PLAQUENIL                          /00072602/ [Concomitant]
     Dosage: 200 mg, UNK
     Route: 048
  3. VICODIN [Concomitant]
     Dosage: 5/500 mg, UNK
     Route: 048
  4. PRILOSEC                           /00661201/ [Concomitant]
     Dosage: 20 mg, UNK
     Route: 048
  5. VITAMIN D /00107901/ [Concomitant]
     Dosage: 5000 unit, UNK
     Route: 048
  6. PRENATAL                           /00231801/ [Concomitant]
     Dosage: UNK
     Route: 048
  7. VITAMIN B 12 [Concomitant]
     Dosage: 500 mug, UNK
     Route: 048
  8. CALCIUM [Concomitant]
     Dosage: 500 UNK, UNK
     Route: 048
  9. FOLIC ACID [Concomitant]
     Dosage: UNK
     Route: 048
  10. CIMZIA [Concomitant]
     Dosage: 200 mg/ml, UNK
     Route: 058
  11. MAGNESIUM [Concomitant]
     Dosage: 300 mg, UNK
     Route: 048

REACTIONS (2)
  - Drug ineffective [Unknown]
  - Injection site reaction [Unknown]
